FAERS Safety Report 9468531 (Version 1)
Quarter: 2013Q3

REPORT INFORMATION
  Report Type: Report from Study
  Country: IE (occurrence: IE)
  Receive Date: 20130821
  Receipt Date: 20130821
  Transmission Date: 20140515
  Serious: Yes (Other)
  Sender: FDA-Public Use
  Company Number: IE-ABBOTT-13P-229-1135615-00

PATIENT
  Sex: Female

DRUGS (2)
  1. HUMIRA [Suspect]
     Indication: EXPOSURE VIA BODY FLUID
     Dosage: PRESCRIBED MONTHLY-SINCE 2007 TAKEN X2 WKS.
     Route: 050
     Dates: start: 2006, end: 201207
  2. HUMIRA [Suspect]
     Indication: FOETAL EXPOSURE DURING PREGNANCY

REACTIONS (1)
  - Abortion spontaneous [Unknown]
